FAERS Safety Report 6135047-0 (Version None)
Quarter: 2009Q1

REPORT INFORMATION
  Report Type: 
  Country: None (occurrence: None)
  Receive Date: 20090327
  Receipt Date: 20090323
  Transmission Date: 20090719
  Serious: Yes (Life-Threatening, Hospitalization, Other)
  Sender: FDA-Public Use
  Company Number: US-CELGENEUS-163-20785-09010131

PATIENT
  Sex: Male

DRUGS (5)
  1. THALOMID [Suspect]
     Indication: NEUROFIBROMATOSIS
     Route: 048
     Dates: start: 20080520, end: 20080903
  2. THALOMID [Suspect]
     Route: 048
     Dates: start: 20080101, end: 20080201
  3. O2 [Concomitant]
     Route: 065
     Dates: start: 20070501
  4. SPIRIVA [Concomitant]
     Route: 065
     Dates: start: 20070501
  5. ADVAIR HFA [Concomitant]
     Route: 065
     Dates: start: 20070501

REACTIONS (3)
  - CARDIAC FAILURE CONGESTIVE [None]
  - INTRACARDIAC THROMBUS [None]
  - ISCHAEMIC CARDIOMYOPATHY [None]
